FAERS Safety Report 6715108-5 (Version None)
Quarter: 2010Q2

REPORT INFORMATION
  Report Type: 
  Country: None (occurrence: None)
  Receive Date: 20100507
  Receipt Date: 20100426
  Transmission Date: 20101027
  Serious: Yes (Other)
  Sender: FDA-Public Use
  Company Number: US-PFIZER INC-2010053247

PATIENT
  Sex: Female
  Weight: 52 kg

DRUGS (7)
  1. OGEN [Suspect]
     Indication: POSTMENOPAUSE
     Dosage: 0.625 MG, UNK
     Route: 048
  2. ESTROPIPATE [Suspect]
     Indication: POSTMENOPAUSE
     Dosage: UNK
  3. GLUCOPHAGE [Concomitant]
     Indication: TYPE 2 DIABETES MELLITUS
     Dosage: UNK
  4. AVAPRO [Concomitant]
     Dosage: UNK
  5. LIPITOR [Concomitant]
     Indication: BLOOD CHOLESTEROL INCREASED
     Dosage: UNK
  6. WELCHOL [Concomitant]
     Indication: BLOOD CHOLESTEROL INCREASED
     Dosage: UNK
  7. SITAGLIPTIN [Concomitant]
     Dosage: UNK

REACTIONS (11)
  - BLOOD GLUCOSE INCREASED [None]
  - BODY HEIGHT DECREASED [None]
  - BODY TEMPERATURE INCREASED [None]
  - COUGH [None]
  - HYPERSOMNIA [None]
  - INCREASED UPPER AIRWAY SECRETION [None]
  - INFLUENZA [None]
  - NASOPHARYNGITIS [None]
  - NIGHT SWEATS [None]
  - TERMINAL INSOMNIA [None]
  - WEIGHT DECREASED [None]
